FAERS Safety Report 4427382-9 (Version None)
Quarter: 2004Q3

REPORT INFORMATION
  Report Type: 
  Country: None (occurrence: None)
  Receive Date: 20040816
  Receipt Date: 20040816
  Transmission Date: 20050211
  Serious: No
  Sender: FDA-Public Use
  Company Number: None

PATIENT
  Age: 53 Year
  Sex: Male
  Weight: 95.1 kg

DRUGS (3)
  1. AVASTIN [Suspect]
  2. OXALIPATIN 85 MG /M2 Q2 WKS [Suspect]
  3. XELODA [Suspect]

REACTIONS (2)
  - IMPAIRED HEALING [None]
  - WOUND DEHISCENCE [None]
